FAERS Safety Report 25129260 (Version 5)
Quarter: 2025Q2

REPORT INFORMATION
  Report Type: Spontaneous
  Country: US (occurrence: US)
  Receive Date: 20250327
  Receipt Date: 20250520
  Transmission Date: 20250717
  Serious: No
  Sender: PFIZER
  Company Number: US-PFIZER INC-202500050221

PATIENT
  Age: 13 Year
  Sex: Male
  Weight: 34.7 kg

DRUGS (2)
  1. GENOTROPIN [Suspect]
     Active Substance: SOMATROPIN
     Indication: Hypopituitarism
     Dosage: 1.4 MG, DAILY (7 DAYS/WEEK) (0.28 MG/KG/WK)
     Dates: start: 202503
  2. GENOTROPIN [Suspect]
     Active Substance: SOMATROPIN
     Indication: Growth hormone deficiency

REACTIONS (6)
  - Injection site bruising [Unknown]
  - Drug dose omission by device [Unknown]
  - Wrong technique in device usage process [Unknown]
  - Device mechanical issue [Unknown]
  - Device breakage [Unknown]
  - Device physical property issue [Unknown]

NARRATIVE: CASE EVENT DATE: 20250301
